FAERS Safety Report 5041469-1 (Version None)
Quarter: 2006Q2

REPORT INFORMATION
  Report Type: 
  Country: None (occurrence: None)
  Receive Date: 20060628
  Receipt Date: 20060606
  Transmission Date: 20061013
  Serious: Yes (Hospitalization, Other)
  Sender: FDA-Public Use
  Company Number: US200606001724

PATIENT
  Age: 83 Year
  Sex: Female

DRUGS (3)
  1. FORTEO [Suspect]
     Dates: start: 20050701
  2. FORTEO [Concomitant]
  3. ANTIHYPERTENSIVES [Concomitant]

REACTIONS (8)
  - BLOOD PRESSURE DIASTOLIC DECREASED [None]
  - CONTUSION [None]
  - DIZZINESS [None]
  - FALL [None]
  - FATIGUE [None]
  - JOINT INJURY [None]
  - JOINT SPRAIN [None]
  - PHARMACEUTICAL PRODUCT COMPLAINT [None]
